FAERS Safety Report 7370323-5 (Version None)
Quarter: 2011Q1

REPORT INFORMATION
  Report Type: 
  Country: None (occurrence: None)
  Receive Date: 20110323
  Receipt Date: 20110318
  Transmission Date: 20110831
  Serious: Yes (Hospitalization)
  Sender: FDA-Public Use
  Company Number: FR-PFIZER INC-2011059624

PATIENT
  Age: 34 Year
  Sex: Male

DRUGS (2)
  1. CYMBALTA [Suspect]
     Dosage: 1 DF, 1X/DAY
     Route: 048
     Dates: start: 20110211, end: 20110226
  2. XANAX [Suspect]
     Dosage: UNK
     Route: 048
     Dates: start: 20110211, end: 20110226

REACTIONS (1)
  - PANCREATITIS ACUTE [None]
